FAERS Safety Report 6179844-4 (Version None)
Quarter: 2009Q2

REPORT INFORMATION
  Report Type: 
  Country: None (occurrence: None)
  Receive Date: 20090501
  Receipt Date: 20090415
  Transmission Date: 20091009
  Serious: Yes (Death)
  Sender: FDA-Public Use
  Company Number: ADE# 09-075DPR

PATIENT
  Age: 82 Year
  Sex: Female

DRUGS (5)
  1. DIGOXIN [Suspect]
     Indication: ATRIAL FIBRILLATION
     Dosage: ONCE A DAY
  2. COUMADIN EVERY OTHER DAY [Concomitant]
  3. VALIUM [Concomitant]
  4. UNKNOWN BLOOD PRESSURE MEDICATION [Concomitant]
  5. VARIOUS OTHER UNSPECIFIED MEDICATIONS [Concomitant]

REACTIONS (2)
  - CEREBROVASCULAR ACCIDENT [None]
  - MYOCARDIAL INFARCTION [None]
